FAERS Safety Report 4598181-2 (Version None)
Quarter: 2005Q1

REPORT INFORMATION
  Report Type: 
  Country: None (occurrence: None)
  Receive Date: 20050301
  Receipt Date: 20050301
  Transmission Date: 20050727
  Serious: No
  Sender: FDA-Public Use
  Company Number: None

PATIENT
  Age: 94 Year
  Sex: Female
  Weight: 63.5036 kg

DRUGS (1)
  1. VITAMIN B-12 [Suspect]
     Indication: VITAMIN B12 DEFICIENCY
     Dosage: 1 PER DAY
     Dates: start: 20030104, end: 20030301

REACTIONS (3)
  - BLOOD THYROID STIMULATING HORMONE INCREASED [None]
  - HYPOTHYROIDISM [None]
  - VITAMIN B12 DEFICIENCY [None]
